FAERS Safety Report 8860626 (Version 3)
Quarter: 2013Q1

REPORT INFORMATION
  Report Type: Report from Study
  Country: GB (occurrence: GB)
  Receive Date: 20121025
  Receipt Date: 20130109
  Transmission Date: 20140127
  Serious: Yes (Other)
  Sender: FDA-Public Use
  Company Number: GB-VERTEX PHARMACEUTICAL INC.-2012-023536

PATIENT
  Age: 42 Year
  Sex: Male
  Weight: 71 kg

DRUGS (3)
  1. VX-950 (TELAPREVIR) [Suspect]
     Indication: HEPATITIS C
     Dosage: 750 MG, TID
     Route: 048
     Dates: start: 20120917, end: 20131212
  2. RIBAVIRIN [Concomitant]
     Indication: HEPATITIS C
     Dosage: DOSAGE FORM: UNSPECIFIED
     Route: 048
     Dates: start: 20120917
  3. PEG INTERFERON [Concomitant]
     Indication: HEPATITIS C
     Dosage: DOSAGE FORM: UNSPECIFIED
     Route: 058
     Dates: start: 20120917

REACTIONS (15)
  - Abdominal pain [Recovered/Resolved]
  - Anaemia [Unknown]
  - Rash [Recovered/Resolved]
  - Nausea [Recovered/Resolved]
  - Dysgeusia [Recovered/Resolved]
  - Painful defaecation [Unknown]
  - Asthenia [Unknown]
  - Wheezing [Unknown]
  - Dyspnoea [Unknown]
  - Dry skin [Unknown]
  - Headache [Unknown]
  - Haemorrhoids [Unknown]
  - Frequent bowel movements [Unknown]
  - Dysgeusia [Unknown]
  - Pruritus [Unknown]
